FAERS Safety Report 14010956 (Version 2)
Quarter: 2017Q3

REPORT INFORMATION
  Report Type: Spontaneous
  Country: US (occurrence: US)
  Receive Date: 20170926
  Receipt Date: 20170929
  Transmission Date: 20171128
  Serious: Yes (Hospitalization)
  Sender: FDA-Public Use
  Company Number: US-PFIZER INC-2017413372

PATIENT
  Age: 57 Year
  Sex: Female
  Weight: 127 kg

DRUGS (8)
  1. XELJANZ XR [Suspect]
     Active Substance: TOFACITINIB CITRATE
     Indication: RHEUMATOID ARTHRITIS
     Dosage: 11 MG, 1X/DAY
     Route: 048
     Dates: start: 20170726, end: 20170729
  2. METHADONE [Concomitant]
     Active Substance: METHADONE HYDROCHLORIDE
     Indication: ARTHRITIS
     Dosage: 10 MG, 3X/DAY (10MG TABLET 3 TIMES A DAY BY MOUTH)
     Route: 048
  3. METHADONE [Concomitant]
     Active Substance: METHADONE HYDROCHLORIDE
     Indication: PAIN
  4. ALLOPURINOL. [Concomitant]
     Active Substance: ALLOPURINOL
     Indication: ARTHRITIS
     Dosage: 200 MG, DAILY (100MG TABLET, 2 TABLETS A DAY BY MOUTH)
     Route: 048
  5. ATENOLOL. [Concomitant]
     Active Substance: ATENOLOL
     Indication: HYPERTENSION
     Dosage: 50 MG, 2X/DAY (50MG TABLET TWICE A DAY BY MOUTH)
     Route: 048
     Dates: start: 1990
  6. HYDROCHLOROTHIAZIDE AND LISINOPRIL [Concomitant]
     Active Substance: HYDROCHLOROTHIAZIDE\LISINOPRIL
     Indication: HYPERTENSION
     Dosage: UNK UNK, 1X/DAY ([LISINOPRIL 20MG]/[HYDROCHLOROTHIAZIDE 25MG] TABLET ONCE A DAY BY MOUTH)
     Route: 048
  7. SINGULAIR [Concomitant]
     Active Substance: MONTELUKAST SODIUM
     Indication: RESPIRATORY DISORDER
     Dosage: 10 MG, 1X/DAY (10MG TABLET ONCE A DAY BY MOUTH)
     Route: 048
     Dates: start: 2016
  8. HYDROCODONE [Concomitant]
     Active Substance: HYDROCODONE
     Indication: BREAKTHROUGH PAIN
     Dosage: UNK UNK, AS NEEDED (10MG TABLET WITH 325 OF ACTOMENOPHEN AS NEEDED BY MOUTH)
     Route: 048

REACTIONS (2)
  - Localised infection [Recovered/Resolved with Sequelae]
  - Wound [Not Recovered/Not Resolved]

NARRATIVE: CASE EVENT DATE: 20170730
